FAERS Safety Report 14993381 (Version 3)
Quarter: 2019Q3

REPORT INFORMATION
  Report Type: Report from Study
  Country: JP (occurrence: JP)
  Receive Date: 20180610
  Receipt Date: 20190703
  Transmission Date: 20191004
  Serious: Yes (Hospitalization)
  Sender: FDA-Public Use
  Company Number: JP-BEH-2018091351

PATIENT
  Age: 10 Year
  Sex: Female
  Weight: 45 kg

DRUGS (40)
  1. IRRADIATED RED CELLS CONCENTRATES-LEUKOCYTES [Concomitant]
     Dosage: UNK
     Route: 065
     Dates: start: 20180422
  2. BERIPLEX P/N [Suspect]
     Active Substance: COAGULATION FACTOR IX HUMAN\COAGULATION FACTOR VII HUMAN\COAGULATION FACTOR X HUMAN\PROTEIN C\PROTEIN S HUMAN\PROTHROMBIN
     Indication: HAEMOSTASIS
     Dosage: 3000 IU, TOT
     Route: 042
     Dates: start: 20180416
  3. IRRADIATED RED CELLS CONCENTRATES-LEUKOCYTES [Concomitant]
     Dosage: UNK
     Route: 065
     Dates: start: 20180506
  4. HUMAN SERUM ALBUMIN [Concomitant]
     Active Substance: ALBUMIN HUMAN
     Dosage: UNK
     Route: 065
     Dates: start: 20180422, end: 20180422
  5. HUMAN SERUM ALBUMIN [Concomitant]
     Active Substance: ALBUMIN HUMAN
     Dosage: UNK
     Route: 065
     Dates: start: 20180503, end: 20180503
  6. RED BLOOD CELLS, LEUCOCYTE DEPLETED [Concomitant]
     Active Substance: HUMAN RED BLOOD CELL
     Dosage: UNK
     Route: 065
     Dates: start: 20180510
  7. FRESH FROZEN PLASMA [Concomitant]
     Active Substance: HUMAN PLASMA
     Dosage: 240 ML, UNK
     Route: 065
     Dates: start: 20180510
  8. IRRADIATED RED CELLS CONCENTRATES-LEUKOCYTES [Concomitant]
     Dosage: UNK
     Route: 065
     Dates: start: 20180419
  9. IRRADIATED RED CELLS CONCENTRATES-LEUKOCYTES [Concomitant]
     Dosage: UNK
     Route: 065
     Dates: start: 20180424
  10. IRRADIATED RED CELLS CONCENTRATES-LEUKOCYTES [Concomitant]
     Dosage: UNK
     Route: 065
     Dates: start: 20180510
  11. HUMAN SERUM ALBUMIN [Concomitant]
     Active Substance: ALBUMIN HUMAN
     Dosage: UNK
     Route: 065
     Dates: start: 20180417, end: 20180417
  12. HUMAN SERUM ALBUMIN [Concomitant]
     Active Substance: ALBUMIN HUMAN
     Dosage: UNK
     Route: 065
     Dates: start: 20180430, end: 20180430
  13. ALBUMINAR-25 [Concomitant]
     Active Substance: ALBUMIN HUMAN
     Indication: PRODUCT USED FOR UNKNOWN INDICATION
     Dosage: UNK
     Route: 065
     Dates: start: 20180418, end: 20180418
  14. NEUART [Concomitant]
     Active Substance: ANTITHROMBIN III HUMAN
     Dosage: 1500 IU, QD
     Route: 065
     Dates: start: 20180421, end: 20180421
  15. FRESH FROZEN PLASMA [Concomitant]
     Active Substance: HUMAN PLASMA
     Dosage: 240 ML, UNK
     Route: 065
     Dates: start: 20180419
  16. IRRADIATED RED CELLS CONCENTRATES-LEUKOCYTES [Concomitant]
     Dosage: UNK
     Route: 065
     Dates: start: 20180502
  17. PLATELET CONCENTRATE(IRRADIATED) [Concomitant]
     Dosage: UNK
     Route: 065
     Dates: start: 20180416, end: 20180416
  18. PLATELET CONCENTRATE(IRRADIATED) [Concomitant]
     Dosage: UNK
     Route: 065
     Dates: start: 20180416
  19. PLATELET CONCENTRATE(IRRADIATED) [Concomitant]
     Dosage: UNK
     Route: 065
     Dates: start: 20180419
  20. ALBUMINAR-5 [Concomitant]
     Active Substance: ALBUMIN HUMAN
     Indication: PRODUCT USED FOR UNKNOWN INDICATION
     Dosage: UNK
     Route: 065
     Dates: start: 20180510, end: 20180510
  21. ALBUMINAR-25 [Concomitant]
     Active Substance: ALBUMIN HUMAN
     Dosage: UNK
     Route: 065
     Dates: start: 20180419, end: 20180419
  22. FRESH FROZEN PLASMA [Concomitant]
     Active Substance: HUMAN PLASMA
     Dosage: 240 ML, UNK
     Route: 065
     Dates: start: 20180420
  23. IRRADIATED RED CELLS CONCENTRATES-LEUKOCYTES [Concomitant]
     Dosage: UNK
     Route: 065
     Dates: start: 20180416
  24. IRRADIATED RED CELLS CONCENTRATES-LEUKOCYTES [Concomitant]
     Dosage: UNK
     Route: 065
     Dates: start: 20180425
  25. WARFARIN [Concomitant]
     Active Substance: WARFARIN
     Indication: MYOCARDITIS
     Dosage: 1 MILLIGRAM, QD
     Route: 048
     Dates: start: 20180430, end: 20180508
  26. BERIPLEX P/N [Suspect]
     Active Substance: COAGULATION FACTOR IX HUMAN\COAGULATION FACTOR VII HUMAN\COAGULATION FACTOR X HUMAN\PROTEIN C\PROTEIN S HUMAN\PROTHROMBIN
     Indication: HAEMOSTASIS
     Dosage: 3000 IU, TOT
     Route: 042
     Dates: start: 20180416
  27. IRRADIATED RED CELLS CONCENTRATES-LEUKOCYTES [Concomitant]
     Dosage: UNK
     Route: 065
     Dates: start: 20180420
  28. HUMAN SERUM ALBUMIN [Concomitant]
     Active Substance: ALBUMIN HUMAN
     Dosage: UNK
     Route: 065
     Dates: start: 20180426, end: 20180426
  29. HUMAN SERUM ALBUMIN [Concomitant]
     Active Substance: ALBUMIN HUMAN
     Dosage: UNK
     Route: 065
     Dates: start: 20180507, end: 20180507
  30. RED BLOOD CELLS, LEUCOCYTE DEPLETED [Concomitant]
     Active Substance: HUMAN RED BLOOD CELL
     Dosage: UNK
     Route: 065
     Dates: start: 20180416
  31. RED BLOOD CELLS, LEUCOCYTE DEPLETED [Concomitant]
     Active Substance: HUMAN RED BLOOD CELL
     Dosage: UNK
     Route: 065
     Dates: start: 20180505
  32. FRESH FROZEN PLASMA [Concomitant]
     Active Substance: HUMAN PLASMA
     Dosage: 240 ML, UNK
     Route: 065
     Dates: start: 20180509
  33. HUMAN SERUM ALBUMIN [Concomitant]
     Active Substance: ALBUMIN HUMAN
     Dosage: UNK
     Route: 065
     Dates: start: 20180502, end: 20180502
  34. FRESH FROZEN PLASMA [Concomitant]
     Active Substance: HUMAN PLASMA
     Dosage: 240 ML, UNK
     Route: 065
     Dates: start: 20180416
  35. FRESH FROZEN PLASMA [Concomitant]
     Active Substance: HUMAN PLASMA
     Dosage: 240 ML, UNK
     Route: 065
     Dates: start: 20180417
  36. FRESH FROZEN PLASMA [Concomitant]
     Active Substance: HUMAN PLASMA
     Dosage: 240 ML, UNK
     Route: 065
     Dates: start: 20180507
  37. FRESH FROZEN PLASMA [Concomitant]
     Active Substance: HUMAN PLASMA
     Dosage: 240 ML, UNK
     Route: 065
     Dates: start: 20180508
  38. IRRADIATED RED CELLS CONCENTRATES-LEUKOCYTES [Concomitant]
     Dosage: UNK
     Route: 065
     Dates: start: 20180417
  39. RED BLOOD CELLS, LEUCOCYTE DEPLETED [Concomitant]
     Active Substance: HUMAN RED BLOOD CELL
     Dosage: UNK
     Route: 065
     Dates: start: 20180419
  40. WARFARIN [Concomitant]
     Active Substance: WARFARIN
     Indication: THROMBOSIS PROPHYLAXIS

REACTIONS (1)
  - Thrombosis in device [Recovering/Resolving]

NARRATIVE: CASE EVENT DATE: 20180417
